FAERS Safety Report 7954442-8 (Version None)
Quarter: 2011Q4

REPORT INFORMATION
  Report Type: 
  Country: None (occurrence: None)
  Receive Date: 20111202
  Receipt Date: 20111128
  Transmission Date: 20120403
  Serious: Yes (Hospitalization)
  Sender: FDA-Public Use
  Company Number: ZA-VIIV HEALTHCARE LIMITED-B0764804A

PATIENT
  Sex: Female
  Weight: 59 kg

DRUGS (5)
  1. COMBIVIR [Suspect]
     Indication: HIV INFECTION
     Route: 048
     Dates: start: 20110914
  2. LOPINAVIR AND RITONAVIR [Suspect]
     Indication: HIV INFECTION
     Dosage: 750MG TWICE PER DAY
     Route: 048
     Dates: start: 20110914
  3. FOLIC ACID [Concomitant]
  4. MULTI-VITAMINS [Concomitant]
  5. FERROUS SULFATE TAB [Concomitant]
     Route: 065

REACTIONS (1)
  - PREMATURE LABOUR [None]
